FAERS Safety Report 9195409 (Version 1)
Quarter: 2013Q1

REPORT INFORMATION
  Report Type: Spontaneous
  Country: US (occurrence: US)
  Receive Date: 20130328
  Receipt Date: 20130328
  Transmission Date: 20140127
  Serious: No
  Sender: FDA-Public Use
  Company Number: US-ALLERGAN-1302573US

PATIENT
  Age: 66 Year
  Sex: Female

DRUGS (4)
  1. LUMIGAN? 0.01% [Suspect]
     Indication: INTRAOCULAR PRESSURE INCREASED
     Dosage: 2 GTT, QHS
     Route: 047
     Dates: start: 20130218
  2. UNSPECIFIED INGREDIENT [Suspect]
     Indication: PUPIL DILATION PROCEDURE
  3. BYSTOLIC [Concomitant]
     Indication: HYPERTENSION
     Dosage: UNK, QHS
     Route: 048
     Dates: start: 2010
  4. PROTONIX                           /01263201/ [Concomitant]
     Indication: GASTROOESOPHAGEAL REFLUX DISEASE
     Dosage: UNK UNK, QD
     Route: 048

REACTIONS (2)
  - Scleral hyperaemia [Recovering/Resolving]
  - Erythema [Recovering/Resolving]
